FAERS Safety Report 5129294-4 (Version None)
Quarter: 2006Q4

REPORT INFORMATION
  Report Type: 
  Country: None (occurrence: None)
  Receive Date: 20061011
  Receipt Date: 20060926
  Transmission Date: 20070319
  Serious: Yes (Life-Threatening)
  Sender: FDA-Public Use
  Company Number: 230396

PATIENT
  Age: 52 Year
  Sex: Female
  Weight: 61 kg

DRUGS (2)
  1. AVASTIN [Suspect]
     Indication: COLORECTAL CANCER METASTATIC
     Dosage: 500 MG, Q3W, INTRAVENOUS
     Route: 042
     Dates: start: 20050202, end: 20050921
  2. BROMAZEPAM (BROMAZEPAM) [Concomitant]

REACTIONS (9)
  - BLOOD UREA INCREASED [None]
  - COAGULOPATHY [None]
  - HAEMOGLOBIN DECREASED [None]
  - HAEMORRHAGE [None]
  - HEPATIC FAILURE [None]
  - HYPOTENSION [None]
  - OLIGURIA [None]
  - SEPSIS [None]
  - THROMBOCYTOPENIA [None]
